FAERS Safety Report 6597254-2 (Version None)
Quarter: 2010Q1

REPORT INFORMATION
  Report Type: 
  Country: None (occurrence: None)
  Receive Date: 20100219
  Receipt Date: 20100219
  Transmission Date: 20100710
  Serious: Yes (Hospitalization)
  Sender: FDA-Public Use
  Company Number: None

PATIENT
  Age: 70 Year
  Sex: Male
  Weight: 72.3 kg

DRUGS (1)
  1. TROPICAMIDE [Suspect]
     Indication: MYDRIASIS
     Dosage: 1 DROPS ONCE EYE
     Dates: start: 20091216, end: 20091216

REACTIONS (8)
  - ARRHYTHMIA [None]
  - CONFUSIONAL STATE [None]
  - DIZZINESS [None]
  - HEART RATE DECREASED [None]
  - HYPOTENSION [None]
  - PALPITATIONS [None]
  - SYNCOPE [None]
  - VENTRICULAR EXTRASYSTOLES [None]
